FAERS Safety Report 8494802-2 (Version None)
Quarter: 2012Q3

REPORT INFORMATION
  Report Type: 
  Country: None (occurrence: None)
  Receive Date: 20120709
  Receipt Date: 20120624
  Transmission Date: 20120928
  Serious: Yes (Hospitalization)
  Sender: FDA-Public Use
  Company Number: US-AMGEN-USASP2012035606

PATIENT
  Age: 97 Year
  Sex: Female

DRUGS (12)
  1. MULTIVITAMIN                       /00097801/ [Concomitant]
     Dosage: UNK UNK, QD
  2. XANAX [Concomitant]
     Dosage: 0.25 MG, BID
  3. CALCIUM + VITAMIN D                /01483701/ [Concomitant]
     Dosage: 1200 MG, QD
  4. VITAMIN C                          /00008001/ [Concomitant]
     Dosage: UNK UNK, QD
  5. SENOKOT [Concomitant]
     Dosage: UNK UNK, QD
  6. ASPIRIN [Concomitant]
     Dosage: 81 MG, QD
  7. VITAMIN D [Concomitant]
     Dosage: 5000 IU, UNK
  8. LABETALOL HCL [Concomitant]
     Dosage: 100 MG, BID
  9. NEXIUM [Concomitant]
     Dosage: 40 G, QD
  10. DIOVAN [Concomitant]
     Indication: HYPERTENSION
     Dosage: 160 MG, QD
  11. PROLIA [Suspect]
     Indication: OSTEOPOROSIS
     Dosage: 60 MG, Q6MO
     Route: 058
     Dates: start: 20110922
  12. COLACE [Concomitant]
     Dosage: 100 MG, QD

REACTIONS (3)
  - TRANSIENT ISCHAEMIC ATTACK [None]
  - SKIN LESION [None]
  - ECZEMA [None]
